FAERS Safety Report 20085022 (Version 5)
Quarter: 2022Q1

REPORT INFORMATION
  Report Type: Report from Study
  Country: US (occurrence: US)
  Receive Date: 20211118
  Receipt Date: 20220312
  Transmission Date: 20220423
  Serious: Yes (Hospitalization, Other)
  Sender: FDA-Public Use
  Company Number: US-NOVARTISTESTPH-NVSC2021US264167

PATIENT
  Age: 51 Year
  Sex: Female

DRUGS (1)
  1. KESIMPTA [Suspect]
     Active Substance: OFATUMUMAB
     Indication: Relapsing multiple sclerosis
     Dosage: 20 MG, QMO
     Route: 058
     Dates: start: 20211109, end: 20220109

REACTIONS (6)
  - Brain neoplasm malignant [Not Recovered/Not Resolved]
  - Influenza like illness [Unknown]
  - Headache [Unknown]
  - Cerebrovascular accident [Unknown]
  - Coagulopathy [Unknown]
  - Migraine [Unknown]

NARRATIVE: CASE EVENT DATE: 20211109
